FAERS Safety Report 10756657 (Version 2)
Quarter: 2015Q1

REPORT INFORMATION
  Report Type: Spontaneous
  Country: BR (occurrence: BR)
  Receive Date: 20150202
  Receipt Date: 20150218
  Transmission Date: 20150721
  Serious: Yes (Other)
  Sender: FDA-Public Use
  Company Number: PHHY2015BR012632

PATIENT
  Sex: Male
  Weight: 72 kg

DRUGS (1)
  1. TRILEPTAL [Suspect]
     Active Substance: OXCARBAZEPINE
     Indication: SEIZURE
     Dosage: 1 DF, QD (BEFORE SLEEPING)
     Route: 048
     Dates: start: 2011

REACTIONS (6)
  - Personality change [Not Recovered/Not Resolved]
  - Deafness [Not Recovered/Not Resolved]
  - Aggression [Not Recovered/Not Resolved]
  - Diet refusal [Not Recovered/Not Resolved]
  - Abnormal behaviour [Not Recovered/Not Resolved]
  - Weight decreased [Not Recovered/Not Resolved]

NARRATIVE: CASE EVENT DATE: 2013
